FAERS Safety Report 11062193 (Version 1)
Quarter: 2015Q2

REPORT INFORMATION
  Report Type: Spontaneous
  Country: FR (occurrence: None)
  Receive Date: 20150422
  Receipt Date: 20150422
  Transmission Date: 20150821
  Serious: Yes (Hospitalization)
  Sender: FDA-Public Use
  Company Number: TPU2015-00164

PATIENT
  Age: 83 Year
  Sex: Female

DRUGS (9)
  1. METFORMINE (METFORMINE HYDROCHLORIDE) [Concomitant]
  2. DOLIPRANE [Concomitant]
     Active Substance: ACETAMINOPHEN
  3. TEGRETOL [Suspect]
     Active Substance: CARBAMAZEPINE
     Indication: PRODUCT USED FOR UNKNOWN INDICATION
     Route: 048
     Dates: start: 20141211, end: 20150113
  4. KARDEGIC [Concomitant]
     Active Substance: ASPIRIN LYSINE
  5. ATARAX HYDROXYZINE) [Concomitant]
  6. VERSATIS (LIDOCAINE PATCH 5%) PERCENT, POULTICE OR PATCH [Suspect]
     Active Substance: LIDOCAINE
     Indication: PRODUCT USED FOR UNKNOWN INDICATION
     Route: 061
     Dates: start: 20141211, end: 20150113
  7. TEMERIT (NEBIVOLOL HYDROCHLORIDE) [Concomitant]
  8. LAROXYL (AMITRIPTYLINE HYDROCHLORIDE) [Suspect]
     Active Substance: AMITRIPTYLINE
     Indication: PRODUCT USED FOR UNKNOWN INDICATION
     Route: 048
     Dates: start: 20141211, end: 20150113
  9. VENLAFAXINE [Concomitant]
     Active Substance: VENLAFAXINE HYDROCHLORIDE

REACTIONS (5)
  - Eosinophilia [None]
  - Lymphocytosis [None]
  - Cholestasis [None]
  - Hepatocellular injury [None]
  - Drug reaction with eosinophilia and systemic symptoms [None]

NARRATIVE: CASE EVENT DATE: 20150106
